FAERS Safety Report 8737822 (Version 3)
Quarter: 2013Q4

REPORT INFORMATION
  Report Type: Report from Study
  Country: JP (occurrence: JP)
  Receive Date: 20120822
  Receipt Date: 20131101
  Transmission Date: 20140711
  Serious: Yes (Hospitalization)
  Sender: FDA-Public Use
  Company Number: JP-009507513-1208JPN004269

PATIENT
  Age: 65 Year
  Sex: Male
  Weight: 57 kg

DRUGS (13)
  1. PEGINTRON [Suspect]
     Indication: HEPATITIS C
     Dosage: 1.5 MICROGRAM PER KILOGRAM
     Route: 058
     Dates: start: 20120207, end: 20120508
  2. PEGINTRON [Suspect]
     Dosage: 1.5 MICROGRAM PER KILOGRAM
     Route: 058
     Dates: start: 20120523, end: 20120718
  3. REBETOL [Suspect]
     Indication: HEPATITIS C
     Dosage: 600 MG, QD
     Route: 048
     Dates: start: 20120207, end: 20120226
  4. REBETOL [Suspect]
     Dosage: 200 MG, QD
     Route: 048
     Dates: start: 20120227, end: 20120327
  5. REBETOL [Suspect]
     Dosage: 400 MG, QD
     Route: 048
     Dates: start: 20120328, end: 20120508
  6. REBETOL [Suspect]
     Dosage: 400 MG, QD
     Route: 048
     Dates: start: 20120523, end: 20120724
  7. TELAVIC [Suspect]
     Indication: HEPATITIS C
     Dosage: 2250 MG, QD
     Route: 048
     Dates: start: 20120207, end: 20120502
  8. GASTER [Concomitant]
     Indication: PROPHYLAXIS
     Dosage: 40 MG, QD
     Route: 048
     Dates: start: 20120207
  9. CELESTAMINE COMBINATION [Concomitant]
     Indication: PROPHYLAXIS
     Dosage: 2 DF, QD
     Route: 048
     Dates: start: 20120207
  10. CELESTAMINE COMBINATION [Concomitant]
     Dosage: 2 DF, QD
     Route: 048
     Dates: start: 20120501
  11. LOXONIN [Concomitant]
     Indication: PROPHYLAXIS
     Dosage: 1 DF, PRN
     Route: 048
     Dates: start: 20120207
  12. LOXONIN [Concomitant]
     Dosage: 1 DF, QD
     Route: 048
     Dates: end: 20120724
  13. ZYLORIC [Concomitant]
     Indication: BLOOD URIC ACID INCREASED
     Dosage: 1 DF, QD
     Route: 048
     Dates: end: 20120508

REACTIONS (2)
  - Pyrexia [Recovered/Resolved]
  - Pyrexia [Recovered/Resolved]
